FAERS Safety Report 4541848-2 (Version None)
Quarter: 2004Q4

REPORT INFORMATION
  Report Type: 
  Country: None (occurrence: None)
  Receive Date: 20041227
  Receipt Date: 20041208
  Transmission Date: 20050328
  Serious: Yes (Death)
  Sender: FDA-Public Use
  Company Number: 2004S1000275

PATIENT
  Age: 61 Year
  Sex: Male
  Weight: 80.0145 kg

DRUGS (2)
  1. ACITRETIN (ACITRETIN) [Suspect]
     Indication: PSORIASIS
     Dosage: 25 MG;QOD;PO
     Route: 048
     Dates: start: 19950609
  2. SIMVASTATIN [Concomitant]

REACTIONS (1)
  - DEATH [None]
